FAERS Safety Report 7201525-6 (Version None)
Quarter: 2010Q4

REPORT INFORMATION
  Report Type: 
  Country: None (occurrence: None)
  Receive Date: 20101216
  Receipt Date: 20101213
  Transmission Date: 20110411
  Serious: Yes (Death)
  Sender: FDA-Public Use
  Company Number: DSA_44272_2010

PATIENT
  Sex: Male

DRUGS (1)
  1. XENAZINE [Suspect]
     Indication: HUNTINGTON'S DISEASE
     Dosage: 25 MG TID
     Dates: start: 20090113, end: 20100101

REACTIONS (3)
  - DISEASE PROGRESSION [None]
  - HUNTINGTON'S DISEASE [None]
  - WEIGHT DECREASED [None]
